FAERS Safety Report 4710549-X (Version None)
Quarter: 2005Q3

REPORT INFORMATION
  Report Type: 
  Country: None (occurrence: None)
  Receive Date: 20050707
  Receipt Date: 20050624
  Transmission Date: 20060218
  Serious: Yes (Hospitalization)
  Sender: FDA-Public Use
  Company Number: 2003185414JP

PATIENT
  Age: 40 Year
  Sex: Female
  Weight: 86.9999 kg

DRUGS (6)
  1. GENOTROPIN [Suspect]
     Indication: HYPOPITUITARISM
     Dosage: 0.2 MG (0.2 MG, DAILY), SUBCUTANEOUS
     Route: 058
     Dates: start: 20030722, end: 20031007
  2. GENOTROPIN [Suspect]
     Indication: HYPOPITUITARISM
     Dosage: 0.2 MG (0.2 MG, DAILY), SUBCUTANEOUS
     Route: 058
     Dates: start: 20031118, end: 20040902
  3. LEVOTHYROXINE SODIUM [Concomitant]
  4. CORTRIL [Concomitant]
  5. PREMARIN [Concomitant]
  6. DUPHASTON [Concomitant]

REACTIONS (2)
  - DRUG WITHDRAWAL SYNDROME [None]
  - MALAISE [None]
